FAERS Safety Report 9662419 (Version 2)
Quarter: 2013Q4

REPORT INFORMATION
  Report Type: Spontaneous
  Country: US (occurrence: US)
  Receive Date: 20131031
  Receipt Date: 20131031
  Transmission Date: 20140711
  Serious: No
  Sender: FDA-Public Use
  Company Number: US-PURDUE-USA-2010-0048184

PATIENT
  Age: 54 Year
  Sex: Female

DRUGS (6)
  1. OXYCONTIN (NDA 22-272) [Suspect]
     Indication: BACK PAIN
     Dosage: 240 MG, TID
     Dates: start: 20100906
  2. OXYCONTIN (NDA 22-272) [Suspect]
     Indication: NEUROPATHY PERIPHERAL
  3. OXYCONTIN (NDA 22-272) [Suspect]
     Indication: FIBROMYALGIA
  4. METHADONE [Concomitant]
     Indication: PAIN
     Dosage: 20 MG, BID
     Dates: start: 20100801
  5. KLONOPIN [Concomitant]
     Indication: ANXIETY
     Dosage: 1 MG, BID
     Dates: start: 20100801, end: 20110527
  6. CLARITIN                           /00917501/ [Concomitant]
     Indication: RASH
     Dosage: 10 MG, DAILY
     Dates: start: 20100801

REACTIONS (6)
  - Rhinorrhoea [Not Recovered/Not Resolved]
  - Insomnia [Not Recovered/Not Resolved]
  - Drug effect decreased [Not Recovered/Not Resolved]
  - Feeling cold [Not Recovered/Not Resolved]
  - Oedema peripheral [Not Recovered/Not Resolved]
  - Fatigue [Not Recovered/Not Resolved]
